FAERS Safety Report 4777417-9 (Version None)
Quarter: 2005Q3

REPORT INFORMATION
  Report Type: 
  Country: None (occurrence: None)
  Receive Date: 20050915
  Receipt Date: 20050907
  Transmission Date: 20060218
  Serious: Yes (Other)
  Sender: FDA-Public Use
  Company Number: 2005125349

PATIENT

DRUGS (1)
  1. TIKOSYN [Suspect]
     Indication: ILL-DEFINED DISORDER

REACTIONS (4)
  - BONE MARROW DISORDER [None]
  - HAEMOLYSIS [None]
  - RED CELL DISTRIBUTION WIDTH INCREASED [None]
  - SPLENOMEGALY [None]
